FAERS Safety Report 8364266-8 (Version None)
Quarter: 2012Q2

REPORT INFORMATION
  Report Type: 
  Country: None (occurrence: None)
  Receive Date: 20120516
  Receipt Date: 20120508
  Transmission Date: 20120825
  Serious: Yes (Hospitalization, Other)
  Sender: FDA-Public Use
  Company Number: US-BAYER-2012-028649

PATIENT
  Age: 33 Year
  Sex: Female
  Weight: 57.143 kg

DRUGS (5)
  1. PRILOSEC [Concomitant]
     Dosage: 20 MG, DAILY
     Route: 048
     Dates: start: 20110823
  2. DROSPIRENONE AND ETHINYL ESTRADIOL [Suspect]
     Dosage: UNK
     Route: 048
     Dates: start: 20110701, end: 20111201
  3. NORCO [Concomitant]
  4. KEFLEX [Concomitant]
  5. YAZ [Suspect]

REACTIONS (9)
  - GALLBLADDER DISORDER [None]
  - CHOLECYSTITIS CHRONIC [None]
  - CHOLELITHIASIS [None]
  - PAIN [None]
  - EMOTIONAL DISTRESS [None]
  - ANXIETY [None]
  - HERNIA REPAIR [None]
  - INCISIONAL HERNIA REPAIR [None]
  - GENERAL PHYSICAL HEALTH DETERIORATION [None]
